FAERS Safety Report 8307630-5 (Version None)
Quarter: 2012Q2

REPORT INFORMATION
  Report Type: 
  Country: None (occurrence: None)
  Receive Date: 20120424
  Receipt Date: 20120419
  Transmission Date: 20120825
  Serious: Yes (Death)
  Sender: FDA-Public Use
  Company Number: US-PFIZER INC-2012050027

PATIENT
  Sex: Female
  Weight: 102.7 kg

DRUGS (16)
  1. ZYVOX [Suspect]
     Indication: PNEUMONIA
     Dosage: 600 MG, Q 12 H
     Route: 042
     Dates: start: 20110718, end: 20110721
  2. HYDROCORTISONE [Concomitant]
     Dosage: UNK
     Dates: start: 20110701, end: 20110709
  3. CYMBALTA [Interacting]
     Indication: DEPRESSION
     Dosage: 60 MG, DAILY
     Route: 048
     Dates: end: 20110720
  4. MORPHINE [Concomitant]
     Dosage: UNK
     Dates: start: 20110628, end: 20110718
  5. FENTANYL [Concomitant]
     Dosage: UNK
     Dates: start: 20110719, end: 20110720
  6. AMIODARONE [Concomitant]
     Dosage: UNK
     Dates: start: 20110630, end: 20110721
  7. METOPROLOL [Concomitant]
     Dosage: UNK
     Dates: start: 20110624, end: 20110628
  8. MIDAZOLAM [Concomitant]
     Dosage: UNK
  9. BUPROPION [Interacting]
     Indication: DEPRESSION
     Dosage: 150 MG, 3X/DAY
     Route: 048
     Dates: end: 20110721
  10. DIAZEPAM [Concomitant]
     Dosage: UNK
     Dates: start: 20110706, end: 20110708
  11. FLUOXETINE [Concomitant]
     Dosage: 40 MG, UNK
     Dates: start: 20110629, end: 20110710
  12. ZOLPIDEM [Concomitant]
     Dosage: UNK
     Dates: start: 20110713, end: 20110715
  13. VENLAFAXINE [Concomitant]
     Dosage: 37.5 MG, UNK
  14. DIPHENHYDRAMINE [Concomitant]
     Dosage: UNK
     Dates: start: 20110718, end: 20110721
  15. METOPROLOL [Concomitant]
     Dosage: UNK
     Dates: start: 20110709, end: 20110718
  16. SIMVASTATIN [Concomitant]
     Dosage: UNK
     Dates: start: 20110624, end: 20110720

REACTIONS (2)
  - SEROTONIN SYNDROME [None]
  - DRUG INTERACTION [None]
